FAERS Safety Report 6953003-7 (Version None)
Quarter: 2010Q3

REPORT INFORMATION
  Report Type: 
  Country: None (occurrence: None)
  Receive Date: 20100829
  Receipt Date: 20100520
  Transmission Date: 20110219
  Serious: No
  Sender: FDA-Public Use
  Company Number: US-ABBOTT-10P-163-0647073-00

PATIENT
  Sex: Male
  Weight: 122.58 kg

DRUGS (5)
  1. NIASPAN [Suspect]
     Indication: BLOOD CHOLESTEROL INCREASED
     Route: 048
     Dates: end: 20070301
  2. NIASPAN [Suspect]
     Route: 048
     Dates: start: 20080101, end: 20091001
  3. NIASPAN [Suspect]
     Dosage: 750MG + 500MG; 1.5 TIMES DAILY
     Dates: start: 20091001
  4. ASPIRIN [Concomitant]
     Indication: PRODUCT USED FOR UNKNOWN INDICATION
     Route: 048
     Dates: end: 20100401
  5. ASPIRIN [Concomitant]
     Route: 048
     Dates: start: 20100401

REACTIONS (5)
  - FLUSHING [None]
  - HIGH DENSITY LIPOPROTEIN DECREASED [None]
  - PRURITUS [None]
  - TINNITUS [None]
  - WRONG TECHNIQUE IN DRUG USAGE PROCESS [None]
